FAERS Safety Report 15651900 (Version 1)
Quarter: 2018Q4

REPORT INFORMATION
  Report Type: Spontaneous
  Country: RU (occurrence: RU)
  Receive Date: 20181123
  Receipt Date: 20181123
  Transmission Date: 20190205
  Serious: Yes (Other)
  Sender: FDA-Public Use
  Company Number: RU-ARALEZ PHARMACEUTICALS R+D INC.-2018-ARA-002619

PATIENT
  Age: 60 Year
  Sex: Female
  Weight: 76 kg

DRUGS (3)
  1. METOPROLOL SUCCINATE. [Suspect]
     Active Substance: METOPROLOL SUCCINATE
     Indication: MYOCARDIAL INFARCTION
     Dosage: 100 MG, QD
     Route: 048
  2. FORXIGA [Suspect]
     Active Substance: DAPAGLIFLOZIN
     Indication: TYPE 2 DIABETES MELLITUS
     Dosage: 10 MG, QD
     Route: 048
     Dates: start: 201803
  3. FORXIGA [Suspect]
     Active Substance: DAPAGLIFLOZIN
     Dosage: 5 MG, QD
     Route: 048

REACTIONS (3)
  - Malaise [Unknown]
  - Blood glucose decreased [Unknown]
  - Intervertebral discitis [Not Recovered/Not Resolved]

NARRATIVE: CASE EVENT DATE: 2018
